FAERS Safety Report 9239580 (Version 3)
Quarter: 2013Q3

REPORT INFORMATION
  Report Type: Report from Study
  Country: US (occurrence: US)
  Receive Date: 20130418
  Receipt Date: 20130822
  Transmission Date: 20140515
  Serious: Yes (Other)
  Sender: FDA-Public Use
  Company Number: US-VERTEX PHARMACEUTICALS INC.-2013-005000

PATIENT
  Age: 64 Year
  Sex: Female
  Weight: 49 kg

DRUGS (5)
  1. VX-950 (TELAPREVIR) [Suspect]
     Indication: HEPATITIS C
     Dosage: 750 MG, TID
     Route: 048
     Dates: start: 20130328, end: 20130621
  2. PEGASYS [Suspect]
     Indication: HEPATITIS C
     Dosage: UNK UNK, QW
     Route: 058
     Dates: start: 20130328
  3. PEGASYS [Suspect]
     Dosage: 90 ?G, QW
     Route: 058
  4. RIBAVIRIN [Suspect]
     Indication: HEPATITIS C
     Dosage: 600 UNK, UNK
     Route: 048
     Dates: start: 20130328
  5. RIBAVIRIN [Suspect]
     Dosage: 600 MG, QD
     Route: 048

REACTIONS (4)
  - Anaemia [Recovered/Resolved]
  - Fatigue [Recovered/Resolved]
  - Nausea [Recovered/Resolved]
  - Rash [Recovered/Resolved]
